FAERS Safety Report 6566092-9 (Version None)
Quarter: 2010Q1

REPORT INFORMATION
  Report Type: 
  Country: None (occurrence: None)
  Receive Date: 20100202
  Receipt Date: 20100129
  Transmission Date: 20100710
  Serious: Yes (Life-Threatening)
  Sender: FDA-Public Use
  Company Number: JP-ELI_LILLY_AND_COMPANY-JP201001002983

PATIENT
  Sex: Male
  Weight: 61.7 kg

DRUGS (3)
  1. PRASUGREL HYDROCHLORIDE [Suspect]
     Indication: CORONARY ARTERY DISEASE
     Dosage: 20 MG, UNK
     Route: 048
     Dates: start: 20100107, end: 20100107
  2. PRASUGREL HYDROCHLORIDE [Suspect]
     Dosage: 3.75 MG, UNK
     Route: 048
     Dates: start: 20100108, end: 20100108
  3. ASPIRIN [Concomitant]

REACTIONS (1)
  - CARDIAC TAMPONADE [None]
